FAERS Safety Report 13947716 (Version 2)
Quarter: 2017Q4

REPORT INFORMATION
  Report Type: Spontaneous
  Country: US (occurrence: US)
  Receive Date: 20170908
  Receipt Date: 20171019
  Transmission Date: 20180320
  Serious: No
  Sender: FDA-Public Use
  Company Number: US-009507513-1708USA012529

PATIENT
  Age: 27 Year
  Sex: Female
  Weight: 110.5 kg

DRUGS (2)
  1. NEXPLANON [Suspect]
     Active Substance: ETONOGESTREL
     Dosage: 1 DF; OPPOSITE ARM
     Route: 059
     Dates: start: 20170817
  2. NEXPLANON [Suspect]
     Active Substance: ETONOGESTREL
     Dosage: ONE ROD / EVERY THREE YEARS,AVOIDING THE GROOVE BETWEEN BICEPS AND TRICEPS
     Route: 059
     Dates: start: 20140815, end: 20170817

REACTIONS (5)
  - Device kink [Recovered/Resolved]
  - Difficulty removing drug implant [Recovered/Resolved]
  - Incorrect drug administration duration [Unknown]
  - Device breakage [Recovered/Resolved]
  - No adverse event [Unknown]

NARRATIVE: CASE EVENT DATE: 20170816
